FAERS Safety Report 12309520 (Version 3)
Quarter: 2016Q3

REPORT INFORMATION
  Report Type: Spontaneous
  Country: US (occurrence: US)
  Receive Date: 20160427
  Receipt Date: 20160808
  Transmission Date: 20161109
  Serious: No
  Sender: FDA-Public Use
  Company Number: US-PFIZER INC-2016231438

PATIENT
  Age: 55 Year
  Sex: Male
  Weight: 84 kg

DRUGS (4)
  1. CHANTIX [Suspect]
     Active Substance: VARENICLINE TARTRATE
     Indication: SMOKING CESSATION THERAPY
     Dosage: 10 MG, 2X/DAY
     Dates: start: 201604, end: 201604
  2. CYCLOSPORINE. [Concomitant]
     Active Substance: CYCLOSPORINE
     Indication: SYMPATHETIC OPHTHALMIA
     Dosage: 300 MG, 1X/DAY
     Route: 048
     Dates: start: 2009
  3. MYCOPHENOLATE [Concomitant]
     Active Substance: MYCOPHENOLIC ACID
     Indication: SYMPATHETIC OPHTHALMIA
     Dosage: 300 MG, 1X/DAY
     Route: 048
     Dates: start: 2009
  4. PREDNISONE. [Concomitant]
     Active Substance: PREDNISONE
     Indication: SYMPATHETIC OPHTHALMIA
     Dosage: 15 MG, 1X/DAY
     Route: 048
     Dates: start: 2009

REACTIONS (3)
  - Palpitations [Recovered/Resolved]
  - Photopsia [Recovered/Resolved]
  - Skin discolouration [Recovered/Resolved]

NARRATIVE: CASE EVENT DATE: 201604
